FAERS Safety Report 16041410 (Version 1)
Quarter: 2019Q1

REPORT INFORMATION
  Report Type: Spontaneous
  Country: US (occurrence: US)
  Receive Date: 20190206
  Receipt Date: 20190206
  Transmission Date: 20190418
  Serious: Yes (Hospitalization)
  Sender: FDA-Public Use
  Company Number: None

PATIENT
  Age: 73 Year
  Sex: Male
  Weight: 76.5 kg

DRUGS (2)
  1. AZACITIDINE. [Suspect]
     Active Substance: AZACITIDINE
     Indication: ACUTE MYELOID LEUKAEMIA
     Dosage: ?          OTHER FREQUENCY:EVERY 4 WEEKS;?
     Route: 042
     Dates: start: 20180716
  2. PEMBROLUZIMAB [Suspect]
     Active Substance: PEMBROLIZUMAB
     Indication: ACUTE MYELOID LEUKAEMIA
     Route: 042
     Dates: start: 20180702

REACTIONS (12)
  - Mental status changes [None]
  - Malnutrition [None]
  - Confusional state [None]
  - Somnolence [None]
  - Disease progression [None]
  - Asthenia [None]
  - Dehydration [None]
  - Systemic inflammatory response syndrome [None]
  - Infection [None]
  - Platelet count decreased [None]
  - Fluid intake reduced [None]
  - Abdominal pain [None]

NARRATIVE: CASE EVENT DATE: 20190203
